FAERS Safety Report 24269362 (Version 1)
Quarter: 2024Q3

REPORT INFORMATION
  Report Type: Spontaneous
  Country: FR (occurrence: FR)
  Receive Date: 20240830
  Receipt Date: 20240830
  Transmission Date: 20241016
  Serious: Yes (Other)
  Sender: GLAXOSMITHKLINE
  Company Number: None

PATIENT

DRUGS (1)
  1. BENLYSTA [Suspect]
     Active Substance: BELIMUMAB
     Indication: Cutaneous lupus erythematosus
     Dosage: 10 MG/KG (PER CYCLE (3 ADMINISTRATIONS IN TOTAL))
     Route: 042
     Dates: start: 202406, end: 20240710

REACTIONS (3)
  - Face oedema [Recovered/Resolved]
  - Headache [Recovered/Resolved]
  - Vertigo [Recovered/Resolved]

NARRATIVE: CASE EVENT DATE: 20240613
